FAERS Safety Report 8992741 (Version 1)
Quarter: 2013Q1

REPORT INFORMATION
  Report Type: Report from Study
  Country: DE (occurrence: DE)
  Receive Date: 20130102
  Receipt Date: 20130102
  Transmission Date: 20140127
  Serious: Yes (Hospitalization)
  Sender: FDA-Public Use
  Company Number: DE-ROCHE-1175638

PATIENT
  Sex: Male

DRUGS (3)
  1. ALTEPLASE [Suspect]
     Indication: DEEP VEIN THROMBOSIS
     Route: 042
     Dates: start: 19940512, end: 19940515
  2. PARACETAMOL [Concomitant]
     Route: 065
     Dates: start: 19940512, end: 19940516
  3. HEPARIN [Concomitant]
     Route: 042
     Dates: start: 19940512, end: 19940515

REACTIONS (1)
  - Compartment syndrome [Recovered/Resolved]
